FAERS Safety Report 7246550-4 (Version None)
Quarter: 2011Q1

REPORT INFORMATION
  Report Type: 
  Country: None (occurrence: None)
  Receive Date: 20110127
  Receipt Date: 20110121
  Transmission Date: 20110831
  Serious: Yes (Other)
  Sender: FDA-Public Use
  Company Number: FI-BIOGENIDEC-2011BI002403

PATIENT
  Age: 43 Year
  Sex: Female

DRUGS (6)
  1. CYMBALTA [Concomitant]
  2. DESOGESTREL AND ETHINYL ESTRADIOL [Concomitant]
  3. TYSABRI [Suspect]
     Indication: MULTIPLE SCLEROSIS
     Route: 042
     Dates: start: 20101217
  4. SOMAC [Concomitant]
  5. AVAMYS [Concomitant]
     Route: 045
  6. BISOPROLOL [Concomitant]

REACTIONS (1)
  - BLOOD IMMUNOGLOBULIN M DECREASED [None]
